FAERS Safety Report 22127183 (Version 1)
Quarter: 2023Q1

REPORT INFORMATION
  Report Type: Spontaneous
  Country: US (occurrence: US)
  Receive Date: 20230322
  Receipt Date: 20230322
  Transmission Date: 20230418
  Serious: Yes (Other)
  Sender: FDA-Public Use
  Company Number: US-ALLERGAN-2230966US

PATIENT
  Sex: Male

DRUGS (4)
  1. ANDRODERM [Suspect]
     Active Substance: TESTOSTERONE
     Indication: Product used for unknown indication
     Dosage: 4 MG, QD
     Route: 062
     Dates: start: 1998
  2. ANDRODERM [Suspect]
     Active Substance: TESTOSTERONE
     Dosage: 2 MG, QD
     Route: 062
  3. SYNTHROID [Concomitant]
     Active Substance: LEVOTHYROXINE SODIUM
     Indication: Hypothyroidism
     Dosage: 25 ?G
     Route: 048
     Dates: start: 202206
  4. ASPIRIN [Concomitant]
     Active Substance: ASPIRIN
     Indication: Product used for unknown indication
     Dosage: UNK, PRN

REACTIONS (4)
  - Prostate cancer [Unknown]
  - Hypothyroidism [Unknown]
  - Androgen deficiency [Unknown]
  - Hyperthyroidism [Unknown]

NARRATIVE: CASE EVENT DATE: 20200101
